FAERS Safety Report 6258160-6 (Version None)
Quarter: 2009Q2

REPORT INFORMATION
  Report Type: 
  Country: None (occurrence: None)
  Receive Date: 20090630
  Receipt Date: 20080717
  Transmission Date: 20091009
  Serious: Yes (Disabling)
  Sender: FDA-Public Use
  Company Number: M-05-068

PATIENT
  Age: 61 Year
  Sex: Male

DRUGS (7)
  1. PACERONE [Suspect]
     Indication: ATRIAL FIBRILLATION
     Dosage: 200 MG, BID, PO
     Route: 048
     Dates: start: 20010401, end: 20010701
  2. COZAAR [Concomitant]
  3. WARFARIN SODIUM [Concomitant]
  4. DIGOXIN [Concomitant]
  5. CAPTOPRIL [Concomitant]
  6. MAG-OX [Concomitant]
  7. NABUMETONE [Concomitant]

REACTIONS (3)
  - BLINDNESS [None]
  - HEADACHE [None]
  - OPTIC NEUROPATHY [None]
